FAERS Safety Report 5281274-4 (Version None)
Quarter: 2007Q1

REPORT INFORMATION
  Report Type: 
  Country: None (occurrence: None)
  Receive Date: 20061218
  Receipt Date: 20060130
  Transmission Date: 20070707
  Serious: Yes (Other)
  Sender: FDA-Public Use
  Company Number: US200601005490

PATIENT
  Age: 58 Year
  Sex: Female

DRUGS (5)
  1. HUMULIN R [Suspect]
     Indication: DIABETES MELLITUS
  2. HUMULIN N [Suspect]
     Indication: DIABETES MELLITUS
  3. INSULIN ISOPHANE PORCINE (INSULIN ISOPHANE PROCINE) VIAL [Concomitant]
  4. INSULIN ILETIN II REGULAR PORT (INSULIN INJECTION, ISOPHANE) VIAL [Concomitant]
  5. SYNTHROID [Concomitant]

REACTIONS (4)
  - HYPOGLYCAEMIA UNAWARENESS [None]
  - LOSS OF CONSCIOUSNESS [None]
  - MALAISE [None]
  - THINKING ABNORMAL [None]
